FAERS Safety Report 6268223-7 (Version None)
Quarter: 2009Q3

REPORT INFORMATION
  Report Type: 
  Country: None (occurrence: None)
  Receive Date: 20090715
  Receipt Date: 20090709
  Transmission Date: 20100115
  Serious: Yes (Death, Hospitalization)
  Sender: FDA-Public Use
  Company Number: AT-CELGENEUS-009-21880-09070575

PATIENT
  Sex: Female
  Weight: 61 kg

DRUGS (6)
  1. REVLIMID [Suspect]
     Route: 048
     Dates: start: 20070803, end: 20070823
  2. ASPIRIN [Concomitant]
     Indication: THROMBOSIS PROPHYLAXIS
     Route: 048
     Dates: start: 20070803
  3. FORTECORTIN [Concomitant]
     Route: 065
     Dates: start: 20070803, end: 20070805
  4. FORTECORTIN [Concomitant]
     Route: 065
     Dates: start: 20070810, end: 20070812
  5. FORTECORTIN [Concomitant]
     Route: 065
     Dates: start: 20070817, end: 20070819
  6. ERYTHROCYTES [Concomitant]
     Route: 051

REACTIONS (1)
  - MULTIPLE MYELOMA [None]
